FAERS Safety Report 10210439 (Version 1)
Quarter: 2014Q2

REPORT INFORMATION
  Report Type: Spontaneous
  Country: NO (occurrence: NO)
  Receive Date: 20140602
  Receipt Date: 20140602
  Transmission Date: 20141212
  Serious: Yes (Other)
  Sender: FDA-Public Use
  Company Number: PHHY2014NO065220

PATIENT
  Sex: Male
  Weight: 98 kg

DRUGS (2)
  1. RITALIN [Suspect]
     Indication: ATTENTION DEFICIT/HYPERACTIVITY DISORDER
     Dosage: 20 MG, TID
     Dates: start: 2013
  2. RITALIN [Suspect]
     Dosage: 10 MG, UNK

REACTIONS (1)
  - Diarrhoea [Not Recovered/Not Resolved]
